FAERS Safety Report 5039765-7 (Version None)
Quarter: 2006Q2

REPORT INFORMATION
  Report Type: 
  Country: None (occurrence: None)
  Receive Date: 20060601
  Receipt Date: 20060117
  Transmission Date: 20061013
  Serious: No
  Sender: FDA-Public Use
  Company Number: 2006PV007229

PATIENT
  Age: 54 Year
  Sex: Female
  Weight: 127.9144 kg

DRUGS (1)
  1. BYETTA [Suspect]
     Indication: DIABETES MELLITUS NON-INSULIN-DEPENDENT
     Dosage: 5 MCG;BID;SC
     Route: 058
     Dates: start: 20060112

REACTIONS (4)
  - DECREASED APPETITE [None]
  - EARLY SATIETY [None]
  - FEELING JITTERY [None]
  - THERAPEUTIC RESPONSE UNEXPECTED [None]
